FAERS Safety Report 5734870-1 (Version None)
Quarter: 2008Q2

REPORT INFORMATION
  Report Type: 
  Country: None (occurrence: None)
  Receive Date: 20080512
  Receipt Date: 20080507
  Transmission Date: 20081010
  Serious: Yes (Other)
  Sender: FDA-Public Use
  Company Number: A0726821A

PATIENT
  Age: 57 Year
  Sex: Male

DRUGS (1)
  1. ADVAIR DISKUS 100/50 [Suspect]
     Dosage: 1PUFF VARIABLE DOSE
     Route: 055
     Dates: start: 20080418, end: 20080429

REACTIONS (9)
  - CHILLS [None]
  - COLD SWEAT [None]
  - DEHYDRATION [None]
  - HAEMOPTYSIS [None]
  - MIGRAINE [None]
  - PNEUMONIA [None]
  - PYREXIA [None]
  - TACHYCARDIA [None]
  - VOMITING [None]
